FAERS Safety Report 5642820-1 (Version None)
Quarter: 2008Q1

REPORT INFORMATION
  Report Type: 
  Country: None (occurrence: None)
  Receive Date: 20080228
  Receipt Date: 20080222
  Transmission Date: 20080703
  Serious: Yes (Hospitalization)
  Sender: FDA-Public Use
  Company Number: JP-GENENTECH-251344

PATIENT
  Sex: Female
  Weight: 48.7 kg

DRUGS (12)
  1. RITUXAN [Suspect]
     Indication: NON-HODGKIN'S LYMPHOMA
     Dosage: 520 MG, QD
     Route: 042
     Dates: start: 20070625, end: 20070801
  2. ADRIACIN [Concomitant]
     Indication: NON-HODGKIN'S LYMPHOMA
     Dosage: 50 MG, UNK
     Route: 042
     Dates: start: 20070625, end: 20070801
  3. ENDOXAN [Concomitant]
     Indication: NON-HODGKIN'S LYMPHOMA
     Dosage: 780 MG, UNK
     Route: 042
     Dates: start: 20070625, end: 20070801
  4. ONCOVIN [Concomitant]
     Indication: NON-HODGKIN'S LYMPHOMA
     Dosage: 1.5 MG, UNK
     Route: 042
     Dates: start: 20070625, end: 20070801
  5. PREDONINE [Concomitant]
     Indication: NON-HODGKIN'S LYMPHOMA
     Dosage: 100 MG, UNK
     Route: 048
     Dates: start: 20070625
  6. KYTRIL [Concomitant]
     Indication: DRUG USE FOR UNKNOWN INDICATION
     Dosage: 3 MG, UNK
     Route: 042
     Dates: start: 20070625, end: 20070717
  7. CALONAL [Concomitant]
     Indication: DRUG USE FOR UNKNOWN INDICATION
     Dosage: 400 MG, UNK
     Route: 048
     Dates: start: 20070625, end: 20070717
  8. POLARAMINE [Concomitant]
     Indication: DRUG USE FOR UNKNOWN INDICATION
     Dosage: 2 MG, UNK
     Route: 048
     Dates: start: 20070625, end: 20070717
  9. BAKTAR [Concomitant]
     Indication: CYSTITIS
     Dosage: 1 G, X2
     Route: 048
     Dates: start: 20070607
  10. FAMOTIDINE [Concomitant]
     Indication: GASTRITIS
     Dosage: 20 MG, UNK
     Route: 048
     Dates: start: 20070607, end: 20070804
  11. MAGNESIUM OXIDE [Concomitant]
     Indication: CONSTIPATION
     Dosage: 330 MG, X3
     Route: 048
     Dates: start: 20070702
  12. SENNOSIDE [Concomitant]
     Indication: CONSTIPATION
     Dosage: 24 MG, UNK
     Route: 048
     Dates: start: 20070702, end: 20070708

REACTIONS (1)
  - HEPATITIS C [None]
